FAERS Safety Report 4342485-5 (Version None)
Quarter: 2004Q2

REPORT INFORMATION
  Report Type: 
  Country: None (occurrence: None)
  Receive Date: 20040416
  Receipt Date: 20040407
  Transmission Date: 20050107
  Serious: Yes (Congenital Anomaly)
  Sender: FDA-Public Use
  Company Number: 04P-167-0256258-00

PATIENT
  Sex: Male

DRUGS (1)
  1. VALPROATE SODIUM [Suspect]
     Indication: COMPLICATIONS OF MATERNAL EXPOSURE TO THERAPEUTIC DRUGS
     Dosage: TRANSPLACENTAL
     Route: 064

REACTIONS (4)
  - COMPLICATIONS OF MATERNAL EXPOSURE TO THERAPEUTIC DRUGS [None]
  - CONGENITAL ANOMALY [None]
  - FOETAL VALPROATE SYNDROME [None]
  - MATERNAL DRUGS AFFECTING FOETUS [None]
